FAERS Safety Report 21577628 (Version 1)
Quarter: 2022Q4

REPORT INFORMATION
  Report Type: Report from Study
  Country: US (occurrence: US)
  Receive Date: 20221110
  Receipt Date: 20221110
  Transmission Date: 20230113
  Serious: No
  Sender: FDA-Public Use
  Company Number: US-ABBVIE-4134036

PATIENT
  Age: 19 Year
  Sex: Male
  Weight: 74 kg

DRUGS (7)
  1. HUMIRA [Suspect]
     Active Substance: ADALIMUMAB
     Indication: Crohn^s disease
     Dosage: FORM STRENGTH: 80 MILLIGRAM?TWO INJECTIONS OF 80 MILLIGRAMS
     Route: 058
     Dates: start: 20220927
  2. LATUDA [Concomitant]
     Active Substance: LURASIDONE HYDROCHLORIDE
     Indication: Affective disorder
  3. GABAPENTIN [Concomitant]
     Active Substance: GABAPENTIN
     Indication: Affective disorder
  4. PFIZER-BIONTECH COVID-19 VACCINE [Concomitant]
     Active Substance: TOZINAMERAN
     Indication: COVID-19 immunisation
     Dosage: PFIZER BOOSTER 1?1 IN ONCE
     Route: 030
     Dates: start: 2021, end: 2021
  5. PFIZER-BIONTECH COVID-19 VACCINE [Concomitant]
     Active Substance: TOZINAMERAN
     Indication: COVID-19 immunisation
     Dosage: PFIZER FIRST DOSE?1 IN ONCE
     Route: 030
     Dates: start: 2021, end: 2021
  6. PFIZER-BIONTECH COVID-19 VACCINE [Concomitant]
     Active Substance: TOZINAMERAN
     Indication: COVID-19 immunisation
     Dosage: PFIZER SECOND DOSE?1 IN ONCE
     Route: 030
     Dates: start: 2021, end: 2021
  7. PFIZER-BIONTECH COVID-19 VACCINE [Concomitant]
     Active Substance: TOZINAMERAN
     Indication: COVID-19 immunisation
     Dosage: PFIZER BOOSTER 2?1 IN ONCE
     Route: 030
     Dates: start: 2022, end: 2022

REACTIONS (2)
  - Needle issue [Unknown]
  - Injection site haemorrhage [Recovered/Resolved]

NARRATIVE: CASE EVENT DATE: 20220927
